FAERS Safety Report 20870861 (Version 1)
Quarter: 2022Q2

REPORT INFORMATION
  Report Type: Report from Study
  Country: US (occurrence: US)
  Receive Date: 20220525
  Receipt Date: 20220525
  Transmission Date: 20220721
  Serious: No
  Sender: FDA-Public Use
  Company Number: US-BEH-2022145767

PATIENT
  Age: 53 Year
  Sex: Female

DRUGS (1)
  1. HIZENTRA [Suspect]
     Active Substance: HUMAN IMMUNOGLOBULIN G
     Indication: Primary immunodeficiency syndrome
     Dosage: 4 GRAM, QW
     Route: 065
     Dates: start: 20220516

REACTIONS (4)
  - Fatigue [Not Recovered/Not Resolved]
  - Infusion site swelling [Unknown]
  - Injection site mass [Unknown]
  - Infusion site rash [Unknown]

NARRATIVE: CASE EVENT DATE: 20220516
